FAERS Safety Report 4734187-8 (Version None)
Quarter: 2005Q3

REPORT INFORMATION
  Report Type: 
  Country: None (occurrence: None)
  Receive Date: 20050803
  Receipt Date: 20050803
  Transmission Date: 20060218
  Serious: Yes (Congenital Anomaly, Other)
  Sender: FDA-Public Use
  Company Number: None

PATIENT
  Age: 27 Year
  Sex: Female
  Weight: 63.5036 kg

DRUGS (2)
  1. MEFLOQUINE [Suspect]
     Indication: MALARIA PROPHYLAXIS
     Dosage: 250MG Q WEEK X 100 WKS
     Dates: start: 19970701, end: 19990301
  2. MEFLOQUINE [Suspect]
     Indication: MALARIA
     Dosage: 1250 MG STAT X 1 DOSE
     Dates: start: 19980701

REACTIONS (5)
  - ANENCEPHALY [None]
  - CONGENITAL ANOMALY [None]
  - HALLUCINATION [None]
  - MATERNAL DRUGS AFFECTING FOETUS [None]
  - PREGNANCY [None]
